FAERS Safety Report 8263480-X (Version None)
Quarter: 2012Q2

REPORT INFORMATION
  Report Type: 
  Country: None (occurrence: None)
  Receive Date: 20120405
  Receipt Date: 20120328
  Transmission Date: 20120825
  Serious: Yes (Life-Threatening, Hospitalization)
  Sender: FDA-Public Use
  Company Number: GB-TEVA-331043ISR

PATIENT
  Age: 72 Year

DRUGS (5)
  1. OMEPRAZOLE [Concomitant]
  2. SIMVASTATIN [Concomitant]
  3. PERINDOPRIL ERBUMINE [Concomitant]
  4. PREDNISOLONE [Suspect]
     Dosage: 60 MILLIGRAM;
  5. AMLODIPINE [Concomitant]

REACTIONS (2)
  - NEUTROPHIL COUNT INCREASED [None]
  - WHITE BLOOD CELL COUNT INCREASED [None]
